FAERS Safety Report 10542624 (Version 2)
Quarter: 2014Q4

REPORT INFORMATION
  Report Type: Report from Study
  Country: US (occurrence: US)
  Receive Date: 20141027
  Receipt Date: 20141027
  Transmission Date: 20150529
  Serious: Yes (Hospitalization)
  Sender: FDA-Public Use
  Company Number: US-BIOGENIDEC-2013BI093532

PATIENT
  Age: 40 Year
  Sex: Male

DRUGS (2)
  1. AMPYRA [Concomitant]
     Active Substance: DALFAMPRIDINE
     Indication: GAIT DISTURBANCE
  2. AVONEX [Suspect]
     Active Substance: INTERFERON BETA-1A
     Indication: MULTIPLE SCLEROSIS
     Route: 030
     Dates: start: 20070228

REACTIONS (9)
  - Cellulitis [Recovered/Resolved]
  - Tremor [Not Recovered/Not Resolved]
  - Lymphoedema [Recovered/Resolved]
  - Drug ineffective [Recovered/Resolved]
  - Asthenia [Not Recovered/Not Resolved]
  - Skin lesion [Recovered/Resolved]
  - Abasia [Not Recovered/Not Resolved]
  - Skin ulcer [Recovered/Resolved]
  - Gait disturbance [Not Recovered/Not Resolved]

NARRATIVE: CASE EVENT DATE: 20130903
